FAERS Safety Report 6175716-X (Version None)
Quarter: 2009Q2

REPORT INFORMATION
  Report Type: 
  Country: None (occurrence: None)
  Receive Date: 20090501
  Receipt Date: 20090423
  Transmission Date: 20091009
  Serious: Yes (Other)
  Sender: FDA-Public Use
  Company Number: SE-ASTRAZENECA-2009SE01583

PATIENT
  Age: 74 Year
  Sex: Male

DRUGS (2)
  1. MERONEM [Suspect]
     Indication: SEPSIS
     Route: 042
     Dates: start: 20090406, end: 20090409
  2. MERONEM [Suspect]
     Indication: OSTEITIS
     Route: 042
     Dates: start: 20090406, end: 20090409

REACTIONS (3)
  - BLOOD ALKALINE PHOSPHATASE INCREASED [None]
  - PROTHROMBIN LEVEL DECREASED [None]
  - TRANSAMINASES INCREASED [None]
